FAERS Safety Report 15592491 (Version 2)
Quarter: 2018Q4

REPORT INFORMATION
  Report Type: Spontaneous
  Country: US (occurrence: US)
  Receive Date: 20181106
  Receipt Date: 20181123
  Transmission Date: 20190205
  Serious: Yes (Hospitalization, Other)
  Sender: FDA-Public Use
  Company Number: US-B.I. PHARMACEUTICALS,INC./RIDGEFIELD-2018-BI-053417

PATIENT
  Age: 46 Year
  Sex: Female

DRUGS (7)
  1. BUMETANIDE. [Concomitant]
     Active Substance: BUMETANIDE
     Indication: PERIPHERAL SWELLING
     Dosage: ONE CAPLET DAILY;  FORM STRENGTH: 1MG; FORMULATION: CAPLET
     Route: 048
  2. SIMVASTATIN. [Concomitant]
     Active Substance: SIMVASTATIN
     Indication: BLOOD CHOLESTEROL INCREASED
     Dosage: ONE CAPLET DAILY;  FORM STRENGTH: 20MG; FORMULATION: CAPLET
     Route: 048
  3. PIOGLITAZONE HCL [Concomitant]
     Active Substance: PIOGLITAZONE
     Indication: TYPE 2 DIABETES MELLITUS
     Dosage: ONE CAPLET HS;  FORM STRENGTH: 30MG; FORMULATION: CAPLET
     Route: 048
  4. LISINOPRIL. [Concomitant]
     Active Substance: LISINOPRIL
     Indication: HYPERTENSION
     Dosage: ONE CAPLET DAILY;  FORM STRENGTH: 10MG; FORMULATION: CAPLET
     Route: 048
  5. NEXIUM [Concomitant]
     Active Substance: ESOMEPRAZOLE MAGNESIUM
     Indication: GASTROOESOPHAGEAL REFLUX DISEASE
     Route: 065
  6. ZYRTEC [Concomitant]
     Active Substance: CETIRIZINE HYDROCHLORIDE
     Indication: SEASONAL ALLERGY
     Route: 065
  7. GLYXAMBI [Suspect]
     Active Substance: EMPAGLIFLOZIN\LINAGLIPTIN
     Indication: TYPE 2 DIABETES MELLITUS
     Dosage: FORM STRENGTH: 25 MG/ 5 MG
     Route: 048
     Dates: start: 2015

REACTIONS (13)
  - Peripheral swelling [Unknown]
  - Gait disturbance [Unknown]
  - Fungal infection [Not Recovered/Not Resolved]
  - Nausea [Unknown]
  - Vomiting [Recovered/Resolved]
  - Sleep disorder [Unknown]
  - Wound [Unknown]
  - Fournier^s gangrene [Recovered/Resolved]
  - Diabetic ketoacidosis [Recovered/Resolved]
  - Vomiting [Unknown]
  - Pain in extremity [Unknown]
  - Fear [Unknown]
  - Peripheral swelling [Unknown]

NARRATIVE: CASE EVENT DATE: 20170406
